FAERS Safety Report 19567368 (Version 2)
Quarter: 2021Q3

REPORT INFORMATION
  Report Type: Other
  Country: US (occurrence: US)
  Receive Date: 20210716
  Receipt Date: 20210818
  Transmission Date: 20211014
  Serious: Yes (Hospitalization, Disabling, Other)
  Sender: FDA-Public Use
  Company Number: US-ROCHE-2869367

PATIENT
  Age: 49 Year
  Sex: Male
  Weight: 187.5 kg

DRUGS (3)
  1. OCREVUS [Suspect]
     Active Substance: OCRELIZUMAB
     Indication: RELAPSING MULTIPLE SCLEROSIS
     Dosage: DARE OF TREATMENT: 12/APR/2019, 26/APR/2019, 27/SEP/2019, 28/AUG/2020, 13/MAR/2020, 14/MAY/2021
     Route: 042
     Dates: start: 20190421
  2. OCREVUS [Suspect]
     Active Substance: OCRELIZUMAB
     Route: 042
     Dates: start: 201810
  3. COVID?19 VACCINE [Concomitant]
     Dates: start: 20210111

REACTIONS (2)
  - Pulmonary embolism [Not Recovered/Not Resolved]
  - COVID-19 pneumonia [Not Recovered/Not Resolved]

NARRATIVE: CASE EVENT DATE: 20210128
